FAERS Safety Report 6078128-2 (Version None)
Quarter: 2009Q1

REPORT INFORMATION
  Report Type: 
  Country: None (occurrence: None)
  Receive Date: 20090213
  Receipt Date: 20090205
  Transmission Date: 20090719
  Serious: Yes (Hospitalization)
  Sender: FDA-Public Use
  Company Number: US-B.I. PHARMACEUTICALS,INC./RIDGEFIELD-2009-BP-01487BP

PATIENT
  Age: 79 Year
  Sex: Male

DRUGS (3)
  1. FLOMAX [Suspect]
     Indication: BENIGN PROSTATIC HYPERPLASIA
     Dosage: .8MG
     Route: 048
     Dates: start: 20070101
  2. DIOVAN [Concomitant]
     Indication: HYPERTENSION
  3. PERCOCET [Concomitant]
     Indication: PROCEDURAL PAIN

REACTIONS (4)
  - AORTIC ANEURYSM [None]
  - BACK PAIN [None]
  - INCORRECT DOSE ADMINISTERED [None]
  - PAIN IN EXTREMITY [None]
